FAERS Safety Report 5644349-3 (Version None)
Quarter: 2008Q1

REPORT INFORMATION
  Report Type: 
  Country: None (occurrence: None)
  Receive Date: 20080229
  Receipt Date: 20080226
  Transmission Date: 20080703
  Serious: Yes (Other)
  Sender: FDA-Public Use
  Company Number: IE-BRISTOL-MYERS SQUIBB COMPANY-14092431

PATIENT
  Age: 56 Year
  Sex: Female

DRUGS (1)
  1. VELOSEF [Suspect]

REACTIONS (1)
  - TREMOR [None]
